FAERS Safety Report 6288568-4 (Version None)
Quarter: 2009Q3

REPORT INFORMATION
  Report Type: 
  Country: None (occurrence: None)
  Receive Date: 20090729
  Receipt Date: 20090722
  Transmission Date: 20100115
  Serious: Yes (Death)
  Sender: FDA-Public Use
  Company Number: US-ASTRAZENECA-2009SE05563

PATIENT

DRUGS (2)
  1. LIDOCAINE [Suspect]
  2. ERYTHROMYCIN [Suspect]
     Route: 048

REACTIONS (3)
  - COMA [None]
  - CYANOSIS [None]
  - INTENTIONAL DRUG MISUSE [None]
